FAERS Safety Report 22118011 (Version 1)
Quarter: 2023Q1

REPORT INFORMATION
  Report Type: Spontaneous
  Country: US (occurrence: None)
  Receive Date: 20230321
  Receipt Date: 20230321
  Transmission Date: 20230418
  Serious: No
  Sender: FDA-Public Use
  Company Number: US-ROCHE-3117018

PATIENT
  Age: 86 Year
  Sex: Male
  Weight: 122.58 kg

DRUGS (33)
  1. VABYSMO [Suspect]
     Active Substance: FARICIMAB-SVOA
     Indication: Retinal vein occlusion
     Dosage: RECEIVES INJECTIONS IN BOTH EYES AT THE SAME VISIT
     Route: 050
     Dates: start: 20221205
  2. VABYSMO [Suspect]
     Active Substance: FARICIMAB-SVOA
     Indication: Macular oedema
  3. AVASTIN [Suspect]
     Active Substance: BEVACIZUMAB
     Indication: Retinal vein occlusion
     Route: 065
  4. AVASTIN [Suspect]
     Active Substance: BEVACIZUMAB
     Indication: Macular oedema
  5. EYLEA [Suspect]
     Active Substance: AFLIBERCEPT
     Indication: Retinal vein occlusion
     Route: 065
  6. EYLEA [Suspect]
     Active Substance: AFLIBERCEPT
     Indication: Macular oedema
  7. SYSTANE HYDRATION PF PRESERVATIVE FREE [Concomitant]
     Active Substance: POLYETHYLENE GLYCOL 400\PROPYLENE GLYCOL
     Indication: Eye irritation
     Dosage: USES 3 TO 4 TIMES A DAY
     Route: 047
  8. SYSTANE HYDRATION PF PRESERVATIVE FREE [Concomitant]
     Active Substance: POLYETHYLENE GLYCOL 400\PROPYLENE GLYCOL
     Indication: Dry eye
  9. SPIRONOLACTONE [Concomitant]
     Active Substance: SPIRONOLACTONE
     Indication: Oedema peripheral
     Dosage: TAKES UP TO 3 A DAY
     Route: 048
  10. SPIRONOLACTONE [Concomitant]
     Active Substance: SPIRONOLACTONE
     Indication: Oedema peripheral
  11. TORSEMIDE [Concomitant]
     Active Substance: TORSEMIDE
     Indication: Oedema peripheral
     Dosage: TAKES 4 A DAY
     Route: 048
  12. ALPRAZOLAM [Concomitant]
     Active Substance: ALPRAZOLAM
     Indication: Insomnia
     Route: 048
     Dates: start: 2017
  13. AMBIEN [Concomitant]
     Active Substance: ZOLPIDEM TARTRATE
     Indication: Insomnia
     Route: 048
     Dates: start: 2017
  14. FLONASE [Concomitant]
     Active Substance: FLUTICASONE PROPIONATE
     Indication: Chronic sinusitis
     Dosage: ONE IN EACH NOSTRIL TWICE A DAY
     Route: 045
  15. TERAZOSIN [Concomitant]
     Active Substance: TERAZOSIN HYDROCHLORIDE
     Indication: Product used for unknown indication
     Dosage: TAKES DAILY AT BEDTIME
     Route: 048
  16. ATROVENT [Concomitant]
     Active Substance: IPRATROPIUM BROMIDE
     Indication: Chronic sinusitis
     Dosage: USES 2 SQUIRTS BID
     Route: 045
  17. METOPROLOL SUCCINATE [Concomitant]
     Active Substance: METOPROLOL SUCCINATE
     Indication: Cardiac failure
     Route: 048
  18. NITROSTAT [Concomitant]
     Active Substance: NITROGLYCERIN
     Indication: Cardiac failure
     Dosage: TAKES 1 TO 3 AS NEEDED (BUT HASN^T NEEDED TO TAKE IN OVER A YEAR)
     Route: 060
  19. POTASSIUM CHLORIDE [Concomitant]
     Active Substance: POTASSIUM CHLORIDE
     Dosage: TAKES 6 TABLETS PER DAY (40 MEG IN THE MORNING AND 20 MEG AT NIGHT)
     Route: 048
  20. PRADAXA [Concomitant]
     Active Substance: DABIGATRAN ETEXILATE MESYLATE
     Indication: Atrial fibrillation
     Dosage: TAKES ONE CAPSULE TWICE A DAY
     Route: 048
     Dates: start: 2018
  21. PRILOSEC [Concomitant]
     Active Substance: OMEPRAZOLE MAGNESIUM
     Indication: Dyspepsia
     Dosage: TAKES ONE AS NEEDED
     Route: 048
  22. PRILOSEC [Concomitant]
     Active Substance: OMEPRAZOLE MAGNESIUM
     Indication: Gastrooesophageal reflux disease
  23. SYNTHROID [Concomitant]
     Active Substance: LEVOTHYROXINE SODIUM
     Indication: Hypothyroidism
     Dosage: TAKES DAILY IN THE MORNING
     Route: 048
  24. SOLIFENACIN SUCCINATE [Concomitant]
     Active Substance: SOLIFENACIN SUCCINATE
     Indication: Renal failure
     Route: 048
  25. SOLIFENACIN SUCCINATE [Concomitant]
     Active Substance: SOLIFENACIN SUCCINATE
     Indication: Urinary tract infection
  26. VOLTAREN [Concomitant]
     Active Substance: DICLOFENAC SODIUM
     Dosage: APPLIES ON KNEES A COUPLE TIMES A DAY
     Route: 061
  27. SIMVASTATIN [Concomitant]
     Active Substance: SIMVASTATIN
     Indication: Blood cholesterol increased
     Route: 048
  28. MINERALS\VITAMINS [Concomitant]
     Active Substance: MINERALS\VITAMINS
     Route: 048
  29. VITAMIN D3 [Concomitant]
     Active Substance: CHOLECALCIFEROL
     Dosage: OVER THE COUNTER STRENGTH
     Route: 048
  30. LIVER PILLS (UNK INGREDIENTS) [Concomitant]
     Dosage: OVER THE COUNTER NATURE SUPPLEMENT FOR THE LIVER
     Route: 048
  31. VITAMIN E [Concomitant]
     Active Substance: .ALPHA.-TOCOPHEROL
     Route: 048
  32. DEVICE [Concomitant]
     Active Substance: DEVICE
     Dosage: SETTING IS 2 ON THE MACHINE
     Route: 065
  33. COMPRESSION SLEEVE [Concomitant]
     Dosage: WEARS ON HIS LEGS FOR AN HOUR A DAY
     Route: 065

REACTIONS (4)
  - Off label use [Unknown]
  - Off label use [Unknown]
  - Vision blurred [Recovered/Resolved with Sequelae]
  - Visual impairment [Recovered/Resolved with Sequelae]

NARRATIVE: CASE EVENT DATE: 20221205
